FAERS Safety Report 7341650-2 (Version None)
Quarter: 2011Q1

REPORT INFORMATION
  Report Type: 
  Country: None (occurrence: None)
  Receive Date: 20110309
  Receipt Date: 20110302
  Transmission Date: 20110831
  Serious: Yes (Life-Threatening, Hospitalization, Other)
  Sender: FDA-Public Use
  Company Number: GR-TEVA-269704ISR

PATIENT
  Age: 65 Year
  Sex: Male

DRUGS (2)
  1. OXALIPLATIN [Suspect]
     Indication: COLON CANCER
     Route: 042
  2. CAPECITABINE [Concomitant]

REACTIONS (6)
  - ELECTROLYTE IMBALANCE [None]
  - LARYNGOSPASM [None]
  - TACHYCARDIA [None]
  - APHASIA [None]
  - DYSPNOEA [None]
  - EYELID DISORDER [None]
